FAERS Safety Report 8769622 (Version 1)
Quarter: 2012Q4

REPORT INFORMATION
  Report Type: 
  Country: US (occurrence: US)
  Receive Date: 20120905
  Receipt Date: 20120905
  Transmission Date: 20130627
  Serious: Yes (Hospitalization, Other)
  Sender: FDA-Public Use
  Company Number: US-JNJFOC-20120813360

PATIENT
  Age: 69 Year
  Sex: Male

DRUGS (7)
  1. TYLENOL 3 [Suspect]
     Indication: HEADACHE
     Route: 065
  2. VIIBRYD [Suspect]
     Indication: DEPRESSION
     Route: 048
     Dates: start: 2012, end: 20120612
  3. VIIBRYD [Suspect]
     Indication: DEPRESSION
     Route: 048
     Dates: start: 20120413, end: 201204
  4. VIIBRYD [Suspect]
     Indication: DEPRESSION
     Route: 048
     Dates: start: 201204
  5. MORPHINE [Suspect]
     Indication: PRODUCT USED FOR UNKNOWN INDICATION
     Route: 065
  6. ADVAIR [Concomitant]
     Indication: PRODUCT USED FOR UNKNOWN INDICATION
     Route: 065
  7. TRAMADOL [Concomitant]
     Indication: PRODUCT USED FOR UNKNOWN INDICATION
     Route: 065

REACTIONS (12)
  - Aggression [Unknown]
  - Delirium [Recovering/Resolving]
  - Agitation [Unknown]
  - Hallucination [Recovered/Resolved]
  - Delusion [Recovered/Resolved]
  - Amnesia [Unknown]
  - Abnormal behaviour [Unknown]
  - Haemoglobin decreased [Recovered/Resolved]
  - Crying [Unknown]
  - Gastritis [Unknown]
  - Oesophagitis [Unknown]
  - Haematocrit decreased [None]
